FAERS Safety Report 5676554-4 (Version None)
Quarter: 2008Q1

REPORT INFORMATION
  Report Type: 
  Country: None (occurrence: None)
  Receive Date: 20080318
  Receipt Date: 20080304
  Transmission Date: 20080703
  Serious: Yes (Hospitalization)
  Sender: FDA-Public Use
  Company Number: MPS1-1000034

PATIENT
  Age: 6 Year
  Sex: Female
  Weight: 17 kg

DRUGS (1)
  1. ALDURAZYME [Suspect]
     Indication: MUCOPOLYSACCHARIDOSIS I
     Dosage: 0.51 MG/KG, 1X/W, INTRAVENOUS
     Route: 042
     Dates: start: 20071212

REACTIONS (1)
  - PNEUMONIA [None]
